FAERS Safety Report 8022176-X (Version None)
Quarter: 2012Q1

REPORT INFORMATION
  Report Type: 
  Country: None (occurrence: None)
  Receive Date: 20120104
  Receipt Date: 20111226
  Transmission Date: 20120608
  Serious: Yes (Death)
  Sender: FDA-Public Use
  Company Number: JP-PFIZER INC-2011313060

PATIENT
  Age: 69 Year
  Sex: Female

DRUGS (3)
  1. METHYLPREDNISOLONE SODIUM SUCCINATE [Suspect]
     Indication: NEUROPATHY PERIPHERAL
     Dosage: 1 G/DAY
  2. METHYLPREDNISOLONE SODIUM SUCCINATE [Suspect]
     Indication: MUSCLE DISORDER
  3. PREDNISOLONE [Suspect]
     Dosage: 50MG/DAY
     Route: 048

REACTIONS (1)
  - PNEUMOCYSTIS JIROVECI PNEUMONIA [None]
